FAERS Safety Report 7835761-2 (Version None)
Quarter: 2011Q4

REPORT INFORMATION
  Report Type: 
  Country: None (occurrence: None)
  Receive Date: 20111024
  Receipt Date: 20111020
  Transmission Date: 20120403
  Serious: Yes (Other)
  Sender: FDA-Public Use
  Company Number: US-PFIZER INC-2011146424

PATIENT
  Sex: Female

DRUGS (4)
  1. ALBUTEROL [Concomitant]
     Indication: ASTHMA
     Dosage: UNK
     Dates: start: 20010601, end: 20090601
  2. HYDROCODONE [Concomitant]
     Indication: PAIN
     Dosage: UNK
     Dates: start: 20031001, end: 20090701
  3. CHANTIX [Suspect]
     Indication: SMOKING CESSATION THERAPY
     Dosage: 1 MG, UNK
     Dates: start: 20071101, end: 20081001
  4. NABUMETONE [Concomitant]
     Indication: PAIN
     Dosage: UNK
     Dates: start: 20050101, end: 20090101

REACTIONS (7)
  - PARANOIA [None]
  - MENTAL DISORDER [None]
  - EMOTIONAL DISTRESS [None]
  - SUICIDAL IDEATION [None]
  - AGGRESSION [None]
  - DEPRESSION [None]
  - ABNORMAL BEHAVIOUR [None]
